FAERS Safety Report 7251145-2 (Version None)
Quarter: 2011Q1

REPORT INFORMATION
  Report Type: 
  Country: None (occurrence: None)
  Receive Date: 20110128
  Receipt Date: 20110125
  Transmission Date: 20110831
  Serious: Yes (Other)
  Sender: FDA-Public Use
  Company Number: HK-ROXANE LABORATORIES, INC.-2011-RO-00111RO

PATIENT

DRUGS (1)
  1. PROPRANOLOL [Suspect]
     Indication: HAEMANGIOMA
     Route: 048

REACTIONS (1)
  - WHEEZING [None]
